FAERS Safety Report 9174287 (Version 1)
Quarter: 2013Q1

REPORT INFORMATION
  Report Type: Spontaneous
  Country: US (occurrence: None)
  Receive Date: 20130318
  Receipt Date: 20130318
  Transmission Date: 20140127
  Serious: Yes (Hospitalization)
  Sender: FDA-Public Use
  Company Number: None

PATIENT
  Age: 46 Year
  Sex: Female
  Weight: 58.51 kg

DRUGS (14)
  1. DIAZEPAM [Suspect]
     Indication: TREMOR
     Dates: start: 20121108, end: 20130109
  2. DIAZEPAM [Suspect]
     Indication: MUSCULOSKELETAL STIFFNESS
     Dates: start: 20121108, end: 20130109
  3. TOPIRAMATE [Concomitant]
  4. ACETAMINOPHEN [Concomitant]
  5. CITRUS CALCIUM W D [Concomitant]
  6. CALCITONIN NS [Concomitant]
  7. CHROMIUM PICCOLINATE [Concomitant]
  8. FOLIC ACID [Concomitant]
  9. GLYCOPYRROLATE [Concomitant]
  10. LEVOTHYROXINE [Concomitant]
  11. LEVOCETIRIZINE [Concomitant]
  12. OMEPRAZOLE [Concomitant]
  13. POLYETHYLENE GLYCOL [Concomitant]
  14. THERA M PLUS [Concomitant]

REACTIONS (3)
  - Depressed level of consciousness [None]
  - Cardio-respiratory arrest [None]
  - Viral infection [None]
